FAERS Safety Report 24671020 (Version 2)
Quarter: 2024Q4

REPORT INFORMATION
  Report Type: Report from Study
  Country: US (occurrence: US)
  Receive Date: 20241127
  Receipt Date: 20241204
  Transmission Date: 20250115
  Serious: Yes (Hospitalization, Other)
  Sender: ABBVIE
  Company Number: US-ABBVIE-6016418

PATIENT
  Age: 72 Year
  Sex: Male

DRUGS (1)
  1. IMBRUVICA [Suspect]
     Active Substance: IBRUTINIB
     Indication: Product used for unknown indication
     Route: 048
     Dates: end: 2024

REACTIONS (2)
  - Rehabilitation therapy [Unknown]
  - Hospitalisation [Unknown]

NARRATIVE: CASE EVENT DATE: 20241101
